FAERS Safety Report 7954550-1 (Version None)
Quarter: 2011Q4

REPORT INFORMATION
  Report Type: 
  Country: None (occurrence: None)
  Receive Date: 20111202
  Receipt Date: 20111123
  Transmission Date: 20120403
  Serious: Yes (Hospitalization)
  Sender: FDA-Public Use
  Company Number: PHHY2010DE69477

PATIENT
  Sex: Male
  Weight: 93 kg

DRUGS (2)
  1. ARCOXIA [Concomitant]
     Dosage: 90 MG, UNK
  2. RASILEZ [Suspect]
     Indication: HYPERTENSION
     Dosage: 150 MG PER DAY
     Route: 048
     Dates: start: 20100701, end: 20100706

REACTIONS (5)
  - CHEST DISCOMFORT [None]
  - MYALGIA [None]
  - BLOOD CREATINE PHOSPHOKINASE INCREASED [None]
  - MALAISE [None]
  - LIVER FUNCTION TEST ABNORMAL [None]
